FAERS Safety Report 15357490 (Version 1)
Quarter: 2018Q3

REPORT INFORMATION
  Report Type: Report from Study
  Country: CA (occurrence: CA)
  Receive Date: 20180906
  Receipt Date: 20180906
  Transmission Date: 20181010
  Serious: Yes (Other)
  Sender: FDA-Public Use
  Company Number: US-ASTRAZENECA-2017SE00997

PATIENT
  Age: 53 Year
  Sex: Male

DRUGS (9)
  1. OMNARIS [Suspect]
     Active Substance: CICLESONIDE
     Indication: PRODUCT USED FOR UNKNOWN INDICATION
     Dosage: 1 OR 2 SQUIRTS PER NOSTRIL AS NEEDED
     Route: 045
     Dates: start: 20161221
  2. METRONIDAZOLE. [Concomitant]
     Active Substance: METRONIDAZOLE
     Dosage: DAILY
     Route: 048
  3. OMNARIS [Suspect]
     Active Substance: CICLESONIDE
     Indication: PRODUCT USED FOR UNKNOWN INDICATION
     Route: 045
  4. AMINOSALICYLIC ACID [Concomitant]
     Active Substance: AMINOSALICYLIC ACID
     Dosage: DAILY
     Route: 048
  5. FLAGYL [Concomitant]
     Active Substance: METRONIDAZOLE\METRONIDAZOLE HYDROCHLORIDE
  6. FLAGYL [Concomitant]
     Active Substance: METRONIDAZOLE\METRONIDAZOLE HYDROCHLORIDE
  7. SALOFALK [Concomitant]
     Active Substance: MESALAMINE
     Dosage: UNK, EVERY DAY
  8. PREDNISONE. [Concomitant]
     Active Substance: PREDNISONE
     Dosage: 50 MG, NOW AT 40 MG/DAY
  9. OMNARIS [Suspect]
     Active Substance: CICLESONIDE
     Indication: PRODUCT USED FOR UNKNOWN INDICATION
     Dosage: 1 OR 2 SQUIRTS PER NOSTRIL AS NEEDED
     Route: 045

REACTIONS (3)
  - Fatigue [Not Recovered/Not Resolved]
  - Insomnia [Unknown]
  - Colon adenoma [Not Recovered/Not Resolved]

NARRATIVE: CASE EVENT DATE: 20161219
